FAERS Safety Report 6251656-2 (Version None)
Quarter: 2009Q2

REPORT INFORMATION
  Report Type: 
  Country: None (occurrence: None)
  Receive Date: 20090630
  Receipt Date: 20090618
  Transmission Date: 20091009
  Serious: Yes (Hospitalization)
  Sender: FDA-Public Use
  Company Number: VE-PFIZER INC-2009230618

PATIENT
  Age: 18 Month

DRUGS (1)
  1. ZITHROMAX [Suspect]
     Route: 042

REACTIONS (1)
  - RESPIRATORY ARREST [None]
